FAERS Safety Report 7073935-1 (Version None)
Quarter: 2010Q4

REPORT INFORMATION
  Report Type: 
  Country: None (occurrence: None)
  Receive Date: 20101029
  Receipt Date: 20101019
  Transmission Date: 20110411
  Serious: Yes (Other)
  Sender: FDA-Public Use
  Company Number: CA-JNJFOC-20101005675

PATIENT
  Sex: Male
  Weight: 131 kg

DRUGS (8)
  1. REMICADE [Suspect]
     Indication: ANKYLOSING SPONDYLITIS
     Route: 042
  2. ALTACE [Concomitant]
  3. METOPROLOL [Concomitant]
  4. ASPIRIN [Concomitant]
  5. CITALOPRAM HYDROBROMIDE [Concomitant]
  6. NEXIUM [Concomitant]
  7. METHOTREXATE [Concomitant]
     Dosage: 4 TABLETS ONCE A WEEK ON SUNDAY
  8. FOLIC ACID [Concomitant]

REACTIONS (1)
  - DIABETES MELLITUS [None]
